FAERS Safety Report 26211605 (Version 1)
Quarter: 2025Q4

REPORT INFORMATION
  Report Type: Report from Study
  Country: US (occurrence: US)
  Receive Date: 20251230
  Receipt Date: 20251230
  Transmission Date: 20260117
  Serious: No
  Sender: SANDOZ
  Company Number: US-SANDOZ-SDZ2025US098365

PATIENT
  Sex: Male

DRUGS (1)
  1. OMNITROPE [Suspect]
     Active Substance: SOMATROPIN
     Indication: Short stature
     Dosage: 2 MG, QD, 10 MG/1.5 ML SOLUTION FOR INJECTION IN CARTRIDGE

REACTIONS (3)
  - Injection site discolouration [Unknown]
  - Device difficult to use [Unknown]
  - Device leakage [Unknown]
